APPROVED DRUG PRODUCT: CRYSELLE
Active Ingredient: ETHINYL ESTRADIOL; NORGESTREL
Strength: 0.03MG;0.3MG
Dosage Form/Route: TABLET;ORAL-21
Application: A075840 | Product #001 | TE Code: AB
Applicant: DURAMED PHARMACEUTICALS INC SUB BARR LABORATORIES INC
Approved: Nov 30, 2001 | RLD: No | RS: No | Type: RX